FAERS Safety Report 7575570-5 (Version None)
Quarter: 2011Q2

REPORT INFORMATION
  Report Type: 
  Country: None (occurrence: None)
  Receive Date: 20110627
  Receipt Date: 20110615
  Transmission Date: 20111010
  Serious: Yes (Hospitalization)
  Sender: FDA-Public Use
  Company Number: CZ-UCBSA-028871

PATIENT
  Sex: Male
  Weight: 95 kg

DRUGS (3)
  1. CERTOLIZUMAB PEGOL [Suspect]
     Route: 058
     Dates: end: 20110228
  2. CERTOLIZUMAB PEGOL [Suspect]
     Route: 058
  3. CERTOLIZUMAB PEGOL [Suspect]
     Indication: CROHN'S DISEASE
     Dosage: AT WEEKS 0, 2 AND 4
     Route: 058
     Dates: start: 20091005

REACTIONS (2)
  - ANAL ABSCESS [None]
  - ANAL FISTULA [None]
